FAERS Safety Report 8593053-0 (Version None)
Quarter: 2012Q3

REPORT INFORMATION
  Report Type: 
  Country: None (occurrence: None)
  Receive Date: 20120814
  Receipt Date: 20120806
  Transmission Date: 20120928
  Serious: Yes (Other)
  Sender: FDA-Public Use
  Company Number: JP-GLAXOSMITHKLINE-B0751100A

PATIENT
  Sex: Female

DRUGS (2)
  1. VALPROIC ACID [Concomitant]
     Indication: EPILEPSY
     Dosage: 800MG PER DAY
     Route: 048
     Dates: start: 20100810
  2. LAMICTAL [Suspect]
     Indication: EPILEPSY
     Dosage: 25MG ALTERNATE DAYS
     Route: 048
     Dates: start: 20110825, end: 20110829

REACTIONS (5)
  - ERYTHEMA MULTIFORME [None]
  - PYREXIA [None]
  - DRUG ERUPTION [None]
  - STOMATITIS [None]
  - PIGMENTATION DISORDER [None]
